FAERS Safety Report 8299644-9 (Version None)
Quarter: 2012Q2

REPORT INFORMATION
  Report Type: 
  Country: None (occurrence: None)
  Receive Date: 20120419
  Receipt Date: 20120413
  Transmission Date: 20120825
  Serious: Yes (Life-Threatening, Hospitalization, Other)
  Sender: FDA-Public Use
  Company Number: US-ELI_LILLY_AND_COMPANY-US201109000509

PATIENT
  Sex: Female

DRUGS (15)
  1. BACLOFEN [Concomitant]
     Dosage: 10 MG, OTHER
  2. OXYCONTIN [Concomitant]
     Dosage: UNK, TID
  3. VITAFUCIN COMP. [Concomitant]
     Dosage: 500 MG, QD
  4. FORTEO [Suspect]
     Indication: OSTEOPOROSIS
     Dosage: 20 UG, QD
     Route: 065
     Dates: start: 20110501
  5. MORPHINE [Concomitant]
     Dosage: 15 MG, QID
  6. VITAMIN B-12 [Concomitant]
     Dosage: 1 DF, MONTHLY (1/M)
  7. ASPIRIN [Concomitant]
     Dosage: UNK, QD
  8. FORTEO [Suspect]
     Dosage: 20 UG, QD
     Route: 065
     Dates: end: 20120121
  9. ALBUTEROL [Concomitant]
     Dosage: 4 DF, PRN
  10. SYMBICORT [Concomitant]
     Dosage: 1 DF, BID
  11. VITAMIN D [Concomitant]
     Dosage: 50000 IU, WEEKLY (1/W)
  12. LYRICA [Concomitant]
     Dosage: 75 MG, UNK
  13. CLORAZEPATE DIPOTASSIUM [Concomitant]
     Dosage: 15 MG, TID
  14. TRAMADOL [Concomitant]
     Dosage: 50 MG, OTHER
  15. DILTIAZEM HCL [Concomitant]
     Dosage: 240 MG, QD

REACTIONS (7)
  - MALAISE [None]
  - ARTHRALGIA [None]
  - CATHETERISATION CARDIAC [None]
  - PNEUMONIA [None]
  - SPINAL DEFORMITY [None]
  - RESPIRATORY FAILURE [None]
  - LOWER RESPIRATORY TRACT INFECTION [None]
